FAERS Safety Report 10510557 (Version 1)
Quarter: 2014Q4

REPORT INFORMATION
  Report Type: Report from Study
  Country: BR (occurrence: BR)
  Receive Date: 20141010
  Receipt Date: 20141010
  Transmission Date: 20150528
  Serious: Yes (Other)
  Sender: FDA-Public Use
  Company Number: BR-ABBVIE-14K-020-1292373-00

PATIENT
  Sex: Female
  Weight: 68.5 kg

DRUGS (9)
  1. METHOTREXATE [Concomitant]
     Active Substance: METHOTREXATE
     Indication: ARTHRITIS
     Route: 048
  2. HUMIRA [Suspect]
     Active Substance: ADALIMUMAB
     Route: 058
  3. GLUCOSAMINE [Concomitant]
     Active Substance: GLUCOSAMINE
     Indication: ARTHRITIS
     Route: 048
     Dates: start: 201304
  4. VITAMIN D [Concomitant]
     Active Substance: CHOLECALCIFEROL
     Indication: ARTHRITIS
     Route: 048
     Dates: start: 201304
  5. HUMIRA [Suspect]
     Active Substance: ADALIMUMAB
     Indication: RHEUMATOID ARTHRITIS
     Route: 058
     Dates: start: 2011
  6. VITAMIN B [Concomitant]
     Active Substance: VITAMIN B
     Indication: ARTHRITIS
     Route: 048
     Dates: start: 201304
  7. PREDNISONE. [Concomitant]
     Active Substance: PREDNISONE
     Indication: ARTHRITIS
     Dosage: ALTERNATING DAILY DOSE: 1 TABLET OR HALF TABLET.
     Route: 048
     Dates: start: 2004
  8. UNSPECIFIED DRUG [Suspect]
     Active Substance: UNSPECIFIED INGREDIENT
     Indication: ALOPECIA
     Route: 065
  9. OMEGA 3 [Concomitant]
     Active Substance: OMEGA-3 FATTY ACIDS
     Indication: ARTHRITIS
     Route: 048
     Dates: start: 201304

REACTIONS (6)
  - Alopecia [Not Recovered/Not Resolved]
  - Hormone level abnormal [Unknown]
  - Uterine leiomyoma [Unknown]
  - Weight loss poor [Not Recovered/Not Resolved]
  - Weight increased [Not Recovered/Not Resolved]
  - Drug ineffective [Unknown]

NARRATIVE: CASE EVENT DATE: 2012
